FAERS Safety Report 8417047-0 (Version None)
Quarter: 2012Q2

REPORT INFORMATION
  Report Type: 
  Country: None (occurrence: None)
  Receive Date: 20120606
  Receipt Date: 20120531
  Transmission Date: 20120825
  Serious: Yes (Death)
  Sender: FDA-Public Use
  Company Number: SE-PFIZER INC-2012131089

PATIENT
  Age: 27 Year
  Sex: Male

DRUGS (2)
  1. METHADON HCL TAB [Interacting]
     Dosage: 60 ML, UNK
     Dates: start: 20120225
  2. LYRICA [Suspect]
     Dosage: 300 MG, 1X/DAY

REACTIONS (3)
  - CARDIAC FAILURE [None]
  - TOXICITY TO VARIOUS AGENTS [None]
  - DRUG INTERACTION [None]
